FAERS Safety Report 7239136-9 (Version None)
Quarter: 2011Q1

REPORT INFORMATION
  Report Type: 
  Country: None (occurrence: None)
  Receive Date: 20110119
  Receipt Date: 20110119
  Transmission Date: 20110831
  Serious: Yes (Other)
  Sender: FDA-Public Use
  Company Number: None

PATIENT
  Sex: Female
  Weight: 100.9 kg

DRUGS (2)
  1. INFLIXIMAB [Suspect]
     Indication: RHEUMATOID ARTHRITIS
     Dosage: 300 MG EVERY 8 WEEKS INTRAVENOUS
     Route: 042
     Dates: start: 20100101
  2. METHOTREXATE [Suspect]
     Dosage: 12.5 MG WEEKLY PO
     Route: 048
     Dates: start: 20100916

REACTIONS (3)
  - PREGNANCY [None]
  - DRUG EXPOSURE DURING PREGNANCY [None]
  - INTRA-UTERINE DEATH [None]
